FAERS Safety Report 22136970 (Version 1)
Quarter: 2023Q1

REPORT INFORMATION
  Report Type: Spontaneous
  Country: GB (occurrence: GB)
  Receive Date: 20230324
  Receipt Date: 20230324
  Transmission Date: 20230417
  Serious: Yes (Hospitalization)
  Sender: FDA-Public Use
  Company Number: GB-ELI_LILLY_AND_COMPANY-GB202303007123

PATIENT
  Age: 77 Year
  Sex: Male
  Weight: 104 kg

DRUGS (4)
  1. HUMULIN N [Suspect]
     Active Substance: INSULIN HUMAN
     Indication: Diabetes mellitus
     Dosage: UNK UNK, UNKNOWN
     Route: 065
  2. SEMAGLUTIDE [Suspect]
     Active Substance: SEMAGLUTIDE
     Indication: Type 2 diabetes mellitus
     Dosage: 3 MG, UNKNOWN
     Route: 048
     Dates: start: 20190918, end: 20230203
  3. SEMAGLUTIDE [Suspect]
     Active Substance: SEMAGLUTIDE
     Dosage: 7 MG, UNKNOWN
     Route: 048
     Dates: start: 20190918, end: 20230203
  4. SEMAGLUTIDE [Suspect]
     Active Substance: SEMAGLUTIDE
     Dosage: 14 MG, UNKNOWN
     Route: 048
     Dates: start: 20190918, end: 20230203

REACTIONS (3)
  - Confusional state [Not Recovered/Not Resolved]
  - Abnormal behaviour [Unknown]
  - Hypoglycaemia [Unknown]

NARRATIVE: CASE EVENT DATE: 20230302
